FAERS Safety Report 14503652 (Version 6)
Quarter: 2018Q3

REPORT INFORMATION
  Report Type: Report from Study
  Country: JP (occurrence: JP)
  Receive Date: 20180208
  Receipt Date: 20180926
  Transmission Date: 20181010
  Serious: Yes (Death, Other)
  Sender: FDA-Public Use
  Company Number: JP-BRISTOL-MYERS SQUIBB COMPANY-BMS-2018-011969

PATIENT
  Age: 30 Year
  Sex: Female

DRUGS (1)
  1. NIVOLUMAB [Suspect]
     Active Substance: NIVOLUMAB
     Indication: HEAD AND NECK CANCER
     Dosage: UNK
     Route: 041
     Dates: start: 20170420, end: 20170504

REACTIONS (5)
  - Cachexia [Fatal]
  - Respiratory disorder [Unknown]
  - Malignant neoplasm progression [Unknown]
  - Sepsis [Fatal]
  - Nephroblastoma [Fatal]

NARRATIVE: CASE EVENT DATE: 201705
